FAERS Safety Report 7922196 (Version 3)
Quarter: 2013Q1

REPORT INFORMATION
  Report Type: Spontaneous
  Country: US (occurrence: US)
  Receive Date: 20110429
  Receipt Date: 20130325
  Transmission Date: 20140127
  Serious: Yes (Other)
  Sender: FDA-Public Use
  Company Number: US-ASTRAZENECA-2011SE07037

PATIENT
  Age: 50 Year
  Sex: Male

DRUGS (7)
  1. NEXIUM [Suspect]
     Route: 048
  2. PRILOSEC OTC [Suspect]
     Route: 048
  3. KLONOPIN [Concomitant]
  4. LEXAPRO [Concomitant]
  5. KEPPRA [Concomitant]
  6. LIPITOR [Concomitant]
  7. NORVASC [Concomitant]

REACTIONS (8)
  - Convulsion [Unknown]
  - Fall [Unknown]
  - Head injury [Unknown]
  - Gastrooesophageal reflux disease [Unknown]
  - Sleep disorder due to general medical condition, insomnia type [Unknown]
  - Dyspepsia [Unknown]
  - Dyspepsia [Unknown]
  - Drug dose omission [Unknown]
